FAERS Safety Report 23218745 (Version 2)
Quarter: 2023Q4

REPORT INFORMATION
  Report Type: Spontaneous
  Country: DE (occurrence: DE)
  Receive Date: 20231122
  Receipt Date: 20231227
  Transmission Date: 20240109
  Serious: Yes (Hospitalization, Other)
  Sender: FDA-Public Use
  Company Number: DE-Merck Healthcare KGaA-2023467846

PATIENT
  Sex: Female
  Weight: 83 kg

DRUGS (6)
  1. VERAPAMIL HYDROCHLORIDE [Suspect]
     Active Substance: VERAPAMIL HYDROCHLORIDE
     Indication: Tachycardia
     Dosage: UNK
     Route: 065
  2. ELIQUIS [Suspect]
     Active Substance: APIXABAN
     Indication: Heart rate increased
     Dosage: UNK
     Route: 065
     Dates: start: 2023
  3. BISOPROLOL FUMARATE [Suspect]
     Active Substance: BISOPROLOL FUMARATE
     Indication: Atrial fibrillation
     Dosage: 2.5 MILLIGRAM (IN THE MORNING AND EVENING)
     Route: 065
  4. BISOPROLOL FUMARATE [Suspect]
     Active Substance: BISOPROLOL FUMARATE
     Indication: Atrial flutter
     Dosage: 2.5 MILLIGRAM (IN THE MORNING AND EVENING)
     Route: 065
  5. BISOPROLOL FUMARATE [Suspect]
     Active Substance: BISOPROLOL FUMARATE
     Dosage: 2.5 MILLIGRAM, 0.5 DAY (IN THE MORNING AND EVENING)
     Route: 065
  6. HAWTHORN EXTRACT [Concomitant]
     Indication: Product used for unknown indication
     Dosage: UNK
     Route: 065

REACTIONS (19)
  - Post thrombotic syndrome [Unknown]
  - Portal vein occlusion [Unknown]
  - Perihepatic discomfort [Unknown]
  - Left ventricular hypertrophy [Recovering/Resolving]
  - Dilated cardiomyopathy [Unknown]
  - Pulmonary embolism [Recovering/Resolving]
  - Stasis dermatitis [Unknown]
  - Cholecystitis chronic [Recovering/Resolving]
  - Cardiac failure [Recovering/Resolving]
  - Visual impairment [Unknown]
  - Varicose vein [Unknown]
  - Hypervolaemia [Recovering/Resolving]
  - Dehydration [Unknown]
  - Hepatomegaly [Recovering/Resolving]
  - Emphysema [Unknown]
  - Hyponatraemia [Recovering/Resolving]
  - Heart rate decreased [Not Recovered/Not Resolved]
  - Alopecia [Unknown]
  - Off label use [Not Recovered/Not Resolved]
